FAERS Safety Report 7527521-7 (Version None)
Quarter: 2011Q2

REPORT INFORMATION
  Report Type: 
  Country: None (occurrence: None)
  Receive Date: 20110527
  Receipt Date: 20110516
  Transmission Date: 20111010
  Serious: Yes (Disabling, Other)
  Sender: FDA-Public Use
  Company Number: AUR-APL-2011-01747

PATIENT
  Age: 64 Year
  Sex: Female
  Weight: 66.5 kg

DRUGS (6)
  1. LACRI-LUBE (LANOLIN/MINERAL OIL LIGHT/PETROLATUM ) [Concomitant]
  2. OPTIVE (CARMELLOSE/GLYCEROL) [Concomitant]
  3. DOXAZOSIN MESYLATE [Concomitant]
  4. LOSARTAN POTASSIUM [Suspect]
     Dates: start: 20110101, end: 20110501
  5. SYSTANE (BORATE/HYDROXYPROPYL GUAR/ MACROGOL/PROPLYLENE GLYCOL0 [Concomitant]
  6. FEMOSTON ^EURIMPHARM^(DYDROGESTERONE/ESTRADIOL) [Concomitant]

REACTIONS (1)
  - DRY EYE [None]
